FAERS Safety Report 21694811 (Version 1)
Quarter: 2022Q4

REPORT INFORMATION
  Report Type: Spontaneous
  Country: US (occurrence: None)
  Receive Date: 20221207
  Receipt Date: 20221207
  Transmission Date: 20230113
  Serious: Yes (Hospitalization)
  Sender: FDA-Public Use
  Company Number: 2022A393146

PATIENT
  Age: 93 Year
  Sex: Male

DRUGS (1)
  1. BUDESONIDE\FORMOTEROL\GLYCOPYRRONIUM [Suspect]
     Active Substance: BUDESONIDE\FORMOTEROL\GLYCOPYRRONIUM
     Indication: Chronic obstructive pulmonary disease
     Dosage: 160/9/4.8 MCG AS 2 PUFFS TWICE A DAY
     Route: 055
     Dates: start: 2019

REACTIONS (6)
  - Arteriosclerosis coronary artery [Not Recovered/Not Resolved]
  - Transient ischaemic attack [Unknown]
  - Muscular weakness [Not Recovered/Not Resolved]
  - Hemiplegia [Not Recovered/Not Resolved]
  - Device use issue [Unknown]
  - Product quality issue [Unknown]

NARRATIVE: CASE EVENT DATE: 20200101
